FAERS Safety Report 11673530 (Version 1)
Quarter: 2015Q4

REPORT INFORMATION
  Report Type: Spontaneous
  Country: US (occurrence: None)
  Receive Date: 20151027
  Receipt Date: 20151027
  Transmission Date: 20160304
  Serious: Yes (Other)
  Sender: FDA-Public Use
  Company Number: None

PATIENT
  Age: 17 Year
  Sex: Female
  Weight: 51.71 kg

DRUGS (8)
  1. FENTANYL. [Concomitant]
     Active Substance: FENTANYL
  2. ZOFRAN [Suspect]
     Active Substance: ONDANSETRON HYDROCHLORIDE
     Indication: PROPHYLAXIS OF NAUSEA AND VOMITING
     Route: 042
     Dates: start: 20150803, end: 20150803
  3. DECADRON [Concomitant]
     Active Substance: DEXAMETHASONE
  4. PROPOFOL. [Concomitant]
     Active Substance: PROPOFOL
  5. LIDOCAINE. [Concomitant]
     Active Substance: LIDOCAINE
  6. ZOFRAN [Concomitant]
     Active Substance: ONDANSETRON HYDROCHLORIDE
  7. TORADOL [Concomitant]
     Active Substance: KETOROLAC TROMETHAMINE
  8. MIDAZOLAM [Concomitant]
     Active Substance: MIDAZOLAM\MIDAZOLAM HYDROCHLORIDE

REACTIONS (4)
  - Asthenia [None]
  - Grip strength decreased [None]
  - Anaesthetic complication [None]
  - Locked-in syndrome [None]

NARRATIVE: CASE EVENT DATE: 20150803
